FAERS Safety Report 9476540 (Version 1)
Quarter: 2013Q3

REPORT INFORMATION
  Report Type: Report from Study
  Country: DE (occurrence: DE)
  Receive Date: 20130826
  Receipt Date: 20130826
  Transmission Date: 20140515
  Serious: Yes (Hospitalization)
  Sender: FDA-Public Use
  Company Number: DE-ROCHE-1265007

PATIENT
  Sex: Male
  Weight: 56 kg

DRUGS (16)
  1. TOCILIZUMAB [Suspect]
     Indication: RHEUMATOID ARTHRITIS
     Route: 065
     Dates: start: 201004, end: 201106
  2. TOCILIZUMAB [Suspect]
     Route: 065
     Dates: start: 201108, end: 20120717
  3. METHOTREXATE [Suspect]
     Indication: RHEUMATOID ARTHRITIS
     Dosage: WEEKS
     Route: 048
     Dates: start: 201008, end: 201008
  4. METHOTREXATE [Suspect]
     Route: 051
     Dates: start: 200812, end: 201008
  5. FOLIC ACID [Concomitant]
     Route: 065
     Dates: start: 200911
  6. PREDNISOLON [Concomitant]
     Route: 065
     Dates: start: 200512
  7. SIMVASTATIN [Concomitant]
     Route: 065
     Dates: start: 201010
  8. OPIPRAMOL [Concomitant]
     Route: 065
     Dates: start: 201103
  9. CALCILAC [Concomitant]
     Dosage: 600MG CA; LDH 400 IE
     Route: 065
     Dates: start: 200605
  10. DEKRISTOL [Concomitant]
     Route: 065
     Dates: start: 201010
  11. ACLASTA [Concomitant]
     Route: 065
     Dates: start: 201004
  12. FALITHROM [Concomitant]
     Route: 065
     Dates: start: 200805
  13. KATADOLON [Concomitant]
     Route: 065
     Dates: start: 200911
  14. PANTOPRAZOL [Concomitant]
     Route: 065
     Dates: start: 200807
  15. ARCOXIA [Concomitant]
     Route: 065
     Dates: start: 201001
  16. EFFORTIL [Concomitant]
     Route: 065
     Dates: start: 200909

REACTIONS (3)
  - Pneumonia [Recovered/Resolved]
  - Empyema [Recovered/Resolved]
  - Pleural effusion [Recovered/Resolved]
